FAERS Safety Report 5809084-7 (Version None)
Quarter: 2008Q3

REPORT INFORMATION
  Report Type: 
  Country: None (occurrence: None)
  Receive Date: 20080711
  Receipt Date: 20080711
  Transmission Date: 20090109
  Serious: No
  Sender: FDA-Public Use
  Company Number: None

PATIENT
  Age: 44 Year
  Sex: Female
  Weight: 65.7716 kg

DRUGS (1)
  1. AVELOX [Suspect]
     Indication: HYSTERECTOMY
     Dosage: ONE TABLEST DAILY PO
     Route: 048
     Dates: start: 20080625, end: 20080630

REACTIONS (1)
  - TENDON PAIN [None]
